FAERS Safety Report 7033617-9 (Version None)
Quarter: 2010Q4

REPORT INFORMATION
  Report Type: 
  Country: None (occurrence: None)
  Receive Date: 20101007
  Receipt Date: 20100929
  Transmission Date: 20110411
  Serious: Yes (Other)
  Sender: FDA-Public Use
  Company Number: CZ-ROXANE LABORATORIES, INC.-2010-RO-01286RO

PATIENT
  Age: 57 Year
  Sex: Female

DRUGS (1)
  1. MORPHINE [Suspect]
     Indication: POST LAMINECTOMY SYNDROME
     Route: 037

REACTIONS (5)
  - GRANULOMA [None]
  - HYPERREFLEXIA [None]
  - MUSCULAR WEAKNESS [None]
  - PAIN IN EXTREMITY [None]
  - PARAESTHESIA [None]
